FAERS Safety Report 9313127 (Version 1)
Quarter: 2013Q2

REPORT INFORMATION
  Report Type: Spontaneous
  Country: US (occurrence: US)
  Receive Date: 20130528
  Receipt Date: 20130528
  Transmission Date: 20140414
  Serious: No
  Sender: FDA-Public Use
  Company Number: US-ABBOTT-13P-163-1066391-00

PATIENT
  Age: 67 Year
  Sex: Male
  Weight: 113.5 kg

DRUGS (7)
  1. ANDROGEL [Suspect]
     Indication: BLOOD TESTOSTERONE DECREASED
     Route: 061
     Dates: start: 201301
  2. ANDROGEL [Suspect]
     Dates: start: 201212, end: 201301
  3. DILTIAZEM [Concomitant]
     Indication: HYPERTENSION
  4. METFORMIN [Concomitant]
     Indication: DIABETES MELLITUS
  5. SIMVASTATIN [Concomitant]
     Indication: BLOOD CHOLESTEROL INCREASED
  6. GLYBURIDE [Concomitant]
     Indication: DIABETES MELLITUS
  7. LOSARTAN [Concomitant]
     Indication: HYPERTENSION

REACTIONS (4)
  - Incorrect dose administered [Unknown]
  - Asthenia [Not Recovered/Not Resolved]
  - Drug ineffective [Not Recovered/Not Resolved]
  - Blood testosterone decreased [Unknown]
